FAERS Safety Report 19847868 (Version 1)
Quarter: 2021Q3

REPORT INFORMATION
  Report Type: Report from Study
  Country: DE (occurrence: DE)
  Receive Date: 20210917
  Receipt Date: 20210917
  Transmission Date: 20211014
  Serious: Yes (Other)
  Sender: FDA-Public Use
  Company Number: DE-ACCORD-238834

PATIENT

DRUGS (2)
  1. STREPTOZOCIN [Suspect]
     Active Substance: STREPTOZOCIN
     Indication: PANCREATIC NEUROENDOCRINE TUMOUR
     Dosage: STREPTOZOCIN IN 100 ML OF 0.9% NACL IV INFUSION GIVEN OVER 30 MIN
  2. FLUOROURACIL. [Suspect]
     Active Substance: FLUOROURACIL
     Indication: PANCREATIC NEUROENDOCRINE TUMOUR
     Dosage: 5?FU INFUSION IN 100 ML OF 0.9% NACL GIVEN OVER 30 MIN

REACTIONS (2)
  - Pyrexia [Unknown]
  - Leukopenia [Unknown]
